FAERS Safety Report 5708392-8 (Version None)
Quarter: 2008Q2

REPORT INFORMATION
  Report Type: 
  Country: None (occurrence: None)
  Receive Date: 20080414
  Receipt Date: 20080328
  Transmission Date: 20081010
  Serious: Yes (Hospitalization)
  Sender: FDA-Public Use
  Company Number: 2008PL000045

PATIENT
  Age: 57 Year
  Sex: Male

DRUGS (3)
  1. AZATHIOPRINE [Suspect]
     Indication: IMMUNOSUPPRESSANT DRUG THERAPY
     Dosage: PO
     Route: 048
  2. PREDNISOLONE [Concomitant]
  3. TACROLIMUS [Concomitant]

REACTIONS (12)
  - ASPERGILLOSIS [None]
  - CARDIAC VALVE VEGETATION [None]
  - CARDIOGENIC SHOCK [None]
  - COAGULOPATHY [None]
  - CORONARY ARTERY ANEURYSM [None]
  - CORONARY ARTERY EMBOLISM [None]
  - EMPYEMA [None]
  - FUNGAL ENDOCARDITIS [None]
  - MITRAL VALVE INCOMPETENCE [None]
  - RESPIRATORY FAILURE [None]
  - THROMBOCYTOPENIA [None]
  - VENTRICULAR HYPOKINESIA [None]
